FAERS Safety Report 12611385 (Version 1)
Quarter: 2016Q3

REPORT INFORMATION
  Report Type: Spontaneous
  Country: US (occurrence: US)
  Receive Date: 20160801
  Receipt Date: 20160801
  Transmission Date: 20161109
  Serious: Yes (Hospitalization)
  Sender: FDA-Public Use
  Company Number: US-FRESENIUS KABI-FK201604879

PATIENT
  Age: 76 Year
  Sex: Male
  Weight: 95.25 kg

DRUGS (5)
  1. DEXAMETHASONE SODIUM PHOSPHATE INJECTION, USP [Suspect]
     Active Substance: DEXAMETHASONE SODIUM PHOSPHATE
     Indication: OSTEOARTHRITIS
     Route: 014
     Dates: start: 20160719
  2. DEPO-MEDROL [Suspect]
     Active Substance: METHYLPREDNISOLONE ACETATE
     Indication: OSTEOARTHRITIS
     Route: 014
     Dates: start: 20160719
  3. BUPIVACAINE HOSPIRA [Suspect]
     Active Substance: BUPIVACAINE
     Indication: OSTEOARTHRITIS
     Route: 014
     Dates: start: 20160719
  4. TYLENOL WITH CODEINE [Concomitant]
     Active Substance: ACETAMINOPHEN\CODEINE PHOSPHATE
     Indication: PAIN
     Route: 048
     Dates: start: 20160719
  5. LIDOCAINE HOSPIRA [Suspect]
     Active Substance: LIDOCAINE
     Indication: OSTEOARTHRITIS
     Route: 014
     Dates: start: 20160719

REACTIONS (1)
  - Arthritis infective [Not Recovered/Not Resolved]

NARRATIVE: CASE EVENT DATE: 20160723
